FAERS Safety Report 7982268-8 (Version None)
Quarter: 2011Q4

REPORT INFORMATION
  Report Type: 
  Country: None (occurrence: None)
  Receive Date: 20111215
  Receipt Date: 20111215
  Transmission Date: 20120403
  Serious: Yes (Other)
  Sender: FDA-Public Use
  Company Number: None

PATIENT
  Sex: Male
  Weight: 81.4 kg

DRUGS (1)
  1. DILTIAZEM HCL [Suspect]
     Dosage: 10 MG
     Route: 042

REACTIONS (6)
  - RETCHING [None]
  - SYNCOPE [None]
  - NODAL ARRHYTHMIA [None]
  - HYPOTENSION [None]
  - NAUSEA [None]
  - DIZZINESS [None]
